FAERS Safety Report 21831202 (Version 1)
Quarter: 2023Q1

REPORT INFORMATION
  Report Type: Spontaneous
  Country: IT (occurrence: IT)
  Receive Date: 20230106
  Receipt Date: 20230106
  Transmission Date: 20230417
  Serious: Yes (Death, Other)
  Sender: FDA-Public Use
  Company Number: IT-AMGEN-ITASP2021067013

PATIENT

DRUGS (4)
  1. ADALIMUMAB [Suspect]
     Active Substance: ADALIMUMAB
     Indication: Colitis ulcerative
     Dosage: UNK
     Route: 065
  2. ADALIMUMAB [Suspect]
     Active Substance: ADALIMUMAB
     Indication: Crohn^s disease
  3. INFLIXIMAB [Concomitant]
     Active Substance: INFLIXIMAB
     Indication: Crohn^s disease
     Dosage: UNK
     Route: 065
  4. INFLIXIMAB [Concomitant]
     Active Substance: INFLIXIMAB
     Indication: Colitis ulcerative

REACTIONS (24)
  - Adverse drug reaction [Fatal]
  - Neoplasm malignant [Unknown]
  - Hepatic cancer [Unknown]
  - Colorectal cancer [Unknown]
  - Pneumonia [Unknown]
  - Skin cancer [Unknown]
  - Erythema [Unknown]
  - Pruritus [Unknown]
  - Psoriasis [Unknown]
  - Injection related reaction [Unknown]
  - Blood disorder [Unknown]
  - Skin reaction [Unknown]
  - Anorectal discomfort [Unknown]
  - Arthropathy [Unknown]
  - Treatment failure [Unknown]
  - COVID-19 [Unknown]
  - Tachycardia [Unknown]
  - Drug ineffective [Unknown]
  - Infection [Unknown]
  - Tooth abscess [Unknown]
  - Hyperhidrosis [Unknown]
  - Dyspnoea [Unknown]
  - Chest pain [Unknown]
  - Herpes zoster [Unknown]
